FAERS Safety Report 10052317 (Version 1)
Quarter: 2014Q2

REPORT INFORMATION
  Report Type: Spontaneous
  Country: US (occurrence: US)
  Receive Date: 20140402
  Receipt Date: 20140402
  Transmission Date: 20141212
  Serious: Yes (Other)
  Sender: FDA-Public Use
  Company Number: US-ROCHE-1374376

PATIENT
  Age: 56 Year
  Sex: Male

DRUGS (1)
  1. XOLAIR [Suspect]
     Indication: ASTHMA
     Route: 058
     Dates: start: 2013

REACTIONS (7)
  - Asthma [Recovered/Resolved]
  - Middle insomnia [Recovered/Resolved]
  - Agitation [Recovered/Resolved]
  - Mood swings [Recovered/Resolved]
  - Claustrophobia [Recovered/Resolved]
  - Headache [Recovered/Resolved]
  - Dizziness [Recovered/Resolved]
